FAERS Safety Report 8485413-3 (Version None)
Quarter: 2012Q3

REPORT INFORMATION
  Report Type: 
  Country: None (occurrence: None)
  Receive Date: 20120703
  Receipt Date: 20120628
  Transmission Date: 20120928
  Serious: Yes (Other)
  Sender: FDA-Public Use
  Company Number: PHEH2012US012985

PATIENT
  Sex: Male

DRUGS (1)
  1. DIOVAN HCT [Suspect]
     Dosage: 160/25MG, UNK

REACTIONS (7)
  - LIGAMENT INJURY [None]
  - OSTEONECROSIS [None]
  - ARTHRALGIA [None]
  - GROIN PAIN [None]
  - JOINT SWELLING [None]
  - LIGAMENT SPRAIN [None]
  - BACK INJURY [None]
